FAERS Safety Report 20107103 (Version 1)
Quarter: 2021Q4

REPORT INFORMATION
  Report Type: Spontaneous
  Country: CN (occurrence: CN)
  Receive Date: 20211124
  Receipt Date: 20211124
  Transmission Date: 20220303
  Serious: Yes (Hospitalization, Other)
  Sender: FDA-Public Use
  Company Number: CN-BRISTOL-MYERS SQUIBB COMPANY-BMS-2021-123837

PATIENT
  Age: 48 Year
  Sex: Male
  Weight: 52.5 kg

DRUGS (1)
  1. OPDIVO [Suspect]
     Active Substance: NIVOLUMAB
     Indication: Adenocarcinoma gastric
     Dosage: 240 MILLIGRAM
     Route: 041
     Dates: start: 20210729, end: 20210826

REACTIONS (5)
  - Autoimmune haemolytic anaemia [Unknown]
  - Anaemia [Recovering/Resolving]
  - Blood glucose increased [Unknown]
  - Rash pruritic [Recovered/Resolved]
  - Arthralgia [Recovered/Resolved]

NARRATIVE: CASE EVENT DATE: 20210906
